FAERS Safety Report 9118483 (Version 2)
Quarter: 2014Q2

REPORT INFORMATION
  Report Type: Spontaneous
  Country: US (occurrence: US)
  Receive Date: 20130219
  Receipt Date: 20140213
  Transmission Date: 20141212
  Serious: No
  Sender: FDA-Public Use
  Company Number: US-BRISTOL-MYERS SQUIBB COMPANY-17164823

PATIENT
  Age: 72 Year
  Sex: Female

DRUGS (1)
  1. ORENCIA [Suspect]
     Indication: RHEUMATOID ARTHRITIS
     Dosage: NO OF INF: 3,LAST INF: 21NOV12,05DEC12
     Route: 042

REACTIONS (5)
  - Diarrhoea [Unknown]
  - Nasopharyngitis [Unknown]
  - Headache [Unknown]
  - Fatigue [Unknown]
  - Neoplasm [Unknown]
